FAERS Safety Report 8497335-2 (Version None)
Quarter: 2012Q3

REPORT INFORMATION
  Report Type: 
  Country: None (occurrence: None)
  Receive Date: 20120709
  Receipt Date: 20120608
  Transmission Date: 20120928
  Serious: No
  Sender: FDA-Public Use
  Company Number: US-AMGEN-USASP2012036018

PATIENT
  Sex: Female

DRUGS (5)
  1. BUPROPION HCL [Concomitant]
     Dosage: UNK MG, UNK
  2. ENBREL [Suspect]
     Indication: RHEUMATOID ARTHRITIS
     Dosage: 50 MG, QWK
     Dates: start: 20120322
  3. LOVASTATIN [Concomitant]
     Dosage: UNK MG, UNK
  4. METHOTREXATE [Concomitant]
     Dosage: UNK MG, UNK
  5. ETODOLAC [Concomitant]
     Dosage: UNK MG, UNK

REACTIONS (3)
  - INJECTION SITE HAEMATOMA [None]
  - WRONG TECHNIQUE IN DRUG USAGE PROCESS [None]
  - DEVICE MALFUNCTION [None]
